FAERS Safety Report 16235831 (Version 2)
Quarter: 2019Q2

REPORT INFORMATION
  Report Type: Spontaneous
  Country: CN (occurrence: CN)
  Receive Date: 20190424
  Receipt Date: 20190513
  Transmission Date: 20190711
  Serious: Yes (Other)
  Sender: FDA-Public Use
  Company Number: PHHY2019CN094991

PATIENT
  Sex: Male

DRUGS (1)
  1. TASIGNA [Suspect]
     Active Substance: NILOTINIB
     Indication: CHRONIC MYELOID LEUKAEMIA
     Dosage: 600 MG, QD (ONCE IN THE MORNING AND ONCE IN THE EVENING 2 CAPSULES/TIME, 150 MG/CAPSULE)
     Route: 048
     Dates: start: 20190403

REACTIONS (2)
  - Rash [Recovered/Resolved]
  - Electrocardiogram QT prolonged [Recovered/Resolved]
